FAERS Safety Report 5290628-1 (Version None)
Quarter: 2007Q2

REPORT INFORMATION
  Report Type: 
  Country: None (occurrence: None)
  Receive Date: 20070405
  Receipt Date: 20070405
  Transmission Date: 20071010
  Serious: Yes (Life-Threatening, Hospitalization)
  Sender: FDA-Public Use
  Company Number: None

PATIENT
  Age: 53 Year
  Sex: Female

DRUGS (6)
  1. WARFARIN SODIUM [Suspect]
     Indication: THROMBOSIS PROPHYLAXIS
     Dosage: 5 MG PO QD (NOT ADMINISTERED)
  2. COGENTIN [Concomitant]
  3. FERROUS SULFATE TAB [Concomitant]
  4. ZOCOR [Concomitant]
  5. ZOLOFT [Concomitant]
  6. OSCAL [Concomitant]

REACTIONS (2)
  - ANAEMIA [None]
  - DEEP VEIN THROMBOSIS [None]
